FAERS Safety Report 25966918 (Version 2)
Quarter: 2025Q4

REPORT INFORMATION
  Report Type: Spontaneous
  Country: JP (occurrence: JP)
  Receive Date: 20251028
  Receipt Date: 20251225
  Transmission Date: 20260118
  Serious: Yes (Hospitalization, Other)
  Sender: MERCK SHARP & DOHME LLC
  Company Number: JP-009507513-2342418

PATIENT
  Age: 6 Decade
  Sex: Female

DRUGS (2)
  1. KEYTRUDA [Suspect]
     Active Substance: PEMBROLIZUMAB
     Indication: Uterine cancer
     Route: 065
     Dates: start: 20250620, end: 20250825
  2. LENVIMA [Suspect]
     Active Substance: LENVATINIB
     Indication: Uterine cancer
     Dosage: STRENGTH: 10 MG
     Route: 065
     Dates: start: 20250620, end: 20250911

REACTIONS (3)
  - Hepatic function abnormal [Recovered/Resolved]
  - Immune-mediated adrenal insufficiency [Recovered/Resolved with Sequelae]
  - Renal failure [Recovering/Resolving]

NARRATIVE: CASE EVENT DATE: 20250101
